APPROVED DRUG PRODUCT: LEVETIRACETAM
Active Ingredient: LEVETIRACETAM
Strength: 750MG
Dosage Form/Route: TABLET;ORAL
Application: A214815 | Product #003 | TE Code: AB
Applicant: MSN LABORATORIES PRIVATE LTD
Approved: Oct 7, 2022 | RLD: No | RS: No | Type: RX